FAERS Safety Report 9440102 (Version 1)
Quarter: 2013Q3

REPORT INFORMATION
  Report Type: Spontaneous
  Country: FR (occurrence: FR)
  Receive Date: 20130805
  Receipt Date: 20130805
  Transmission Date: 20140515
  Serious: Yes (Other)
  Sender: FDA-Public Use
  Company Number: FR-UCBSA-093440

PATIENT
  Age: 62 Year
  Sex: Male

DRUGS (12)
  1. KEPPRA [Suspect]
     Dosage: 1 UNIT DAILY
     Route: 048
     Dates: start: 20130610, end: 20130620
  2. LOVENOX [Suspect]
     Route: 058
     Dates: start: 20130612, end: 20130620
  3. COOLMETEC [Concomitant]
     Dosage: 1 UNIT DAILY
     Route: 048
     Dates: start: 20130610
  4. APROVEL [Concomitant]
  5. LOXEN [Concomitant]
  6. TEMERIT [Concomitant]
  7. KARDEGIC [Concomitant]
  8. TAHOR [Concomitant]
  9. SERESTA [Concomitant]
  10. STILNOX [Concomitant]
  11. IXEL [Concomitant]
  12. LIORESAL [Concomitant]

REACTIONS (1)
  - Hyperkalaemia [Recovered/Resolved]
